FAERS Safety Report 5448892-1 (Version None)
Quarter: 2007Q3

REPORT INFORMATION
  Report Type: 
  Country: None (occurrence: None)
  Receive Date: 20070911
  Receipt Date: 20070820
  Transmission Date: 20080115
  Serious: No
  Sender: FDA-Public Use
  Company Number: US-BRISTOL-MYERS SQUIBB COMPANY-13882477

PATIENT
  Age: 70 Year
  Sex: Female
  Weight: 68 kg

DRUGS (9)
  1. EMSAM [Suspect]
     Indication: DEPRESSION
     Route: 062
     Dates: start: 20070601
  2. MIRAPEX [Concomitant]
  3. CLONAZEPAM [Concomitant]
  4. LASIX [Concomitant]
  5. POTASSIUM CHLORIDE [Concomitant]
  6. CALCITONIN-SALMON [Concomitant]
     Route: 055
  7. VITAMIN B-12 [Concomitant]
  8. CALCIUM [Concomitant]
  9. MULTI-VITAMIN [Concomitant]

REACTIONS (1)
  - RESTLESS LEGS SYNDROME [None]
